FAERS Safety Report 15908177 (Version 1)
Quarter: 2019Q1

REPORT INFORMATION
  Report Type: Spontaneous
  Country: US (occurrence: US)
  Receive Date: 20190204
  Receipt Date: 20190204
  Transmission Date: 20190417
  Serious: No
  Sender: FDA-Public Use
  Company Number: US-PRAGMA PHARMACEUTICALS, LLC-2019PRG00002

PATIENT
  Age: 59 Year
  Sex: Female

DRUGS (4)
  1. DUPIXENT [Suspect]
     Active Substance: DUPILUMAB
     Dosage: 300 MG, EVERY TWO WEEKS
     Route: 058
     Dates: start: 201812
  2. DUPIXENT [Suspect]
     Active Substance: DUPILUMAB
     Indication: DERMATITIS ATOPIC
     Dosage: 600 MG, ONCE (LOADING DOSE)
     Route: 058
     Dates: start: 20181211, end: 20181211
  3. KEFLEX [Suspect]
     Active Substance: CEPHALEXIN
     Indication: PAIN OF SKIN
     Dosage: UNK, 4X/DAY
     Dates: start: 201812
  4. KEFLEX [Suspect]
     Active Substance: CEPHALEXIN
     Indication: STAPHYLOCOCCAL INFECTION

REACTIONS (5)
  - Paraesthesia oral [Unknown]
  - Treatment noncompliance [Unknown]
  - Throat tightness [Unknown]
  - Anxiety [Unknown]
  - Skin exfoliation [Unknown]

NARRATIVE: CASE EVENT DATE: 201812
